FAERS Safety Report 7406411-4 (Version None)
Quarter: 2011Q2

REPORT INFORMATION
  Report Type: 
  Country: None (occurrence: None)
  Receive Date: 20110411
  Receipt Date: 20110329
  Transmission Date: 20111010
  Serious: Yes (Other)
  Sender: FDA-Public Use
  Company Number: PHHY2011FR27974

PATIENT
  Age: 58 Year
  Sex: Female

DRUGS (3)
  1. ROSUVASTATIN [Concomitant]
     Indication: TYPE IIA HYPERLIPIDAEMIA
     Dosage: UNK
  2. SOTALOL [Concomitant]
     Dosage: UNK
  3. FEMARA [Suspect]
     Indication: BREAST CANCER
     Dosage: 1 DF, QD
     Dates: start: 20090901

REACTIONS (1)
  - PANCREATITIS [None]
